FAERS Safety Report 24397789 (Version 1)
Quarter: 2024Q4

REPORT INFORMATION
  Report Type: Spontaneous
  Country: CN (occurrence: CN)
  Receive Date: 20241004
  Receipt Date: 20241004
  Transmission Date: 20250115
  Serious: Yes (Other)
  Sender: SANOFI AVENTIS
  Company Number: CN-SA-2024SA284604

PATIENT
  Age: 51 Year
  Sex: Male
  Weight: 50 kg

DRUGS (4)
  1. OXALIPLATIN [Suspect]
     Active Substance: OXALIPLATIN
     Indication: Gastric cancer
     Dosage: 40 MG, 1X
     Route: 041
     Dates: start: 20240916, end: 20240916
  2. OXALIPLATIN [Suspect]
     Active Substance: OXALIPLATIN
     Dosage: 40 MG, 1X
     Route: 041
     Dates: start: 20240924, end: 20240924
  3. SODIUM CHLORIDE [Concomitant]
     Active Substance: SODIUM CHLORIDE
     Indication: Vehicle solution use
     Dosage: 100 ML, 1X
     Route: 041
     Dates: start: 20240916, end: 20240916
  4. SODIUM CHLORIDE [Concomitant]
     Active Substance: SODIUM CHLORIDE
     Dosage: 100 ML, 1X
     Route: 041
     Dates: start: 20240924, end: 20240924

REACTIONS (4)
  - Decreased appetite [Recovering/Resolving]
  - Nausea [Recovering/Resolving]
  - Vomiting [Recovering/Resolving]
  - Platelet count decreased [Recovering/Resolving]

NARRATIVE: CASE EVENT DATE: 20240924
